FAERS Safety Report 9825942 (Version 1)
Quarter: 2013Q4

REPORT INFORMATION
  Report Type: Spontaneous
  Country: US (occurrence: None)
  Receive Date: 20131104
  Receipt Date: 20131104
  Transmission Date: 20140711
  Serious: Yes (Other)
  Sender: FDA-Public Use
  Company Number: 1000048481

PATIENT
  Age: 72 Year
  Sex: Female

DRUGS (4)
  1. DALIRESP (ROFLUMILAST) (500 MICROGRAM, TABLETS) [Suspect]
     Indication: CHRONIC OBSTRUCTIVE PULMONARY DISEASE
     Dosage: 500 MCG, 1 IN 1 D
     Route: 048
     Dates: start: 201112
  2. PROVIGIL [Concomitant]
  3. SYNTHROID [Concomitant]
  4. OXYGEN [Concomitant]

REACTIONS (2)
  - Wheezing [None]
  - Drug ineffective [None]
